FAERS Safety Report 24909472 (Version 2)
Quarter: 2025Q1

REPORT INFORMATION
  Report Type: Report from Study
  Country: US (occurrence: US)
  Receive Date: 20250131
  Receipt Date: 20250204
  Transmission Date: 20250409
  Serious: Yes (Hospitalization)
  Sender: ROCHE
  Company Number: US-ROCHE-10000194168

PATIENT
  Age: 47 Year
  Sex: Female
  Weight: 68.5 kg

DRUGS (1)
  1. EVRYSDI [Suspect]
     Active Substance: RISDIPLAM
     Indication: Spinal muscular atrophy
     Dosage: 100 ML BOTTLE
     Route: 048

REACTIONS (3)
  - Urinary tract infection [Recovered/Resolved]
  - Pharyngitis streptococcal [Unknown]
  - Pneumonia [Unknown]
